FAERS Safety Report 14150186 (Version 2)
Quarter: 2017Q4

REPORT INFORMATION
  Report Type: Spontaneous
  Country: US (occurrence: US)
  Receive Date: 20171101
  Receipt Date: 20171122
  Transmission Date: 20180321
  Serious: Yes (Life-Threatening, Hospitalization, Other)
  Sender: FDA-Public Use
  Company Number: US-PFIZER INC-2016445702

PATIENT
  Age: 22 Year
  Sex: Male
  Weight: 71.66 kg

DRUGS (1)
  1. BENEFIX [Suspect]
     Active Substance: COAGULATION FACTOR IX RECOMBINANT HUMAN\ISOPROPYL ALCOHOL
     Indication: FACTOR IX DEFICIENCY
     Dosage: 8600 IU, AS NEEDED (+/-1070) PRN BLEEDING  (MONTHLY DOSE 17200IU)
     Route: 042

REACTIONS (1)
  - Appendicitis [Unknown]

NARRATIVE: CASE EVENT DATE: 20171027
